FAERS Safety Report 18286874 (Version 2)
Quarter: 2021Q3

REPORT INFORMATION
  Report Type: Spontaneous
  Country: US (occurrence: US)
  Receive Date: 20200921
  Receipt Date: 20210830
  Transmission Date: 20211014
  Serious: Yes (Death, Other)
  Sender: FDA-Public Use
  Company Number: US-SA-2020SA252939

PATIENT

DRUGS (2)
  1. RANITIDINE HYDROCHLORIDE. [Suspect]
     Active Substance: RANITIDINE HYDROCHLORIDE
     Dosage: UNK
  2. ZANTAC [Suspect]
     Active Substance: RANITIDINE HYDROCHLORIDE
     Dosage: UNK
     Route: 048
     Dates: start: 199001, end: 201909

REACTIONS (5)
  - Anxiety [Unknown]
  - Pancreatic carcinoma [Fatal]
  - Pain [Unknown]
  - Carcinogenicity [Unknown]
  - Anhedonia [Unknown]

NARRATIVE: CASE EVENT DATE: 20180901
